FAERS Safety Report 10690564 (Version 3)
Quarter: 2015Q1

REPORT INFORMATION
  Report Type: Spontaneous
  Country: US (occurrence: US)
  Receive Date: 20150105
  Receipt Date: 20150206
  Transmission Date: 20150720
  Serious: Yes (Other)
  Sender: FDA-Public Use
  Company Number: US-TEVA-532394USA

PATIENT
  Age: 23 Year
  Sex: Female
  Weight: 71.28 kg

DRUGS (1)
  1. PARAGARD T 380A [Suspect]
     Active Substance: COPPER
     Indication: CONTRACEPTION
     Route: 015
     Dates: start: 20141020, end: 20141229

REACTIONS (4)
  - Device dislocation [Recovered/Resolved]
  - Abortion induced [Recovered/Resolved]
  - Uterine haemorrhage [Unknown]
  - Abdominal pain lower [Unknown]

NARRATIVE: CASE EVENT DATE: 20141216
